FAERS Safety Report 13255711 (Version 1)
Quarter: 2017Q1

REPORT INFORMATION
  Report Type: Spontaneous
  Country: US (occurrence: US)
  Receive Date: 20170218
  Receipt Date: 20170218
  Transmission Date: 20170428
  Serious: Yes (Hospitalization)
  Sender: FDA-Public Use
  Company Number: None

PATIENT
  Age: 68 Year
  Sex: Female
  Weight: 90 kg

DRUGS (13)
  1. VITAMIN B12 [Concomitant]
     Active Substance: CYANOCOBALAMIN
  2. COPAXONE [Suspect]
     Active Substance: GLATIRAMER ACETATE
     Indication: MULTIPLE SCLEROSIS
     Dosage: ?          QUANTITY:12 INJECTION(S);OTHER FREQUENCY:3 X A WEEK;?
     Route: 058
     Dates: start: 20170203, end: 20170215
  3. PROTONIX [Concomitant]
     Active Substance: PANTOPRAZOLE SODIUM
  4. VITAMIN D3 [Concomitant]
     Active Substance: CHOLECALCIFEROL
  5. HYDROCHLOROTHIAZIDE. [Concomitant]
     Active Substance: HYDROCHLOROTHIAZIDE
  6. MULTIVITAMIN- MINERAL [Concomitant]
  7. MAGNESIUM [Concomitant]
     Active Substance: MAGNESIUM
  8. FOLIC ACID. [Concomitant]
     Active Substance: FOLIC ACID
  9. LYCRIA [Concomitant]
  10. CELEBREX [Concomitant]
     Active Substance: CELECOXIB
  11. ATORVASTIN [Concomitant]
     Active Substance: ATORVASTATIN
  12. INDERAL LA [Concomitant]
     Active Substance: PROPRANOLOL HYDROCHLORIDE
  13. BACLOFEN. [Concomitant]
     Active Substance: BACLOFEN

REACTIONS (10)
  - Rash erythematous [None]
  - Pain in jaw [None]
  - Flushing [None]
  - Speech disorder [None]
  - Feeling cold [None]
  - Rash [None]
  - Chills [None]
  - Chest discomfort [None]
  - Back pain [None]
  - Tremor [None]

NARRATIVE: CASE EVENT DATE: 20170215
